FAERS Safety Report 18255392 (Version 2)
Quarter: 2020Q4

REPORT INFORMATION
  Report Type: Spontaneous
  Country: DE (occurrence: JP)
  Receive Date: 20200910
  Receipt Date: 20201222
  Transmission Date: 20210113
  Serious: Yes (Hospitalization)
  Sender: FDA-Public Use
  Company Number: JP-ELI_LILLY_AND_COMPANY-JP202009003247

PATIENT
  Age: 78 Year
  Sex: Male
  Weight: 45 kg

DRUGS (10)
  1. CALONAL [Concomitant]
     Active Substance: ACETAMINOPHEN
     Indication: PRODUCT USED FOR UNKNOWN INDICATION
     Dosage: 500 (UNSPECIFIED UNIT)
     Route: 048
  2. TRAMAL [Concomitant]
     Active Substance: TRAMADOL
     Indication: PRODUCT USED FOR UNKNOWN INDICATION
     Dosage: 25 MG, DAILY
     Route: 048
  3. ERBITUX [Suspect]
     Active Substance: CETUXIMAB
     Indication: OROPHARYNGEAL CANCER
     Dosage: 360 MG, UNK
     Route: 041
     Dates: start: 20191031
  4. POLAPREZINC [Concomitant]
     Active Substance: POLAPREZINC
     Indication: PRODUCT USED FOR UNKNOWN INDICATION
     Dosage: 75 MG, DAILY
  5. FUROSEMIDE. [Concomitant]
     Active Substance: FUROSEMIDE
     Indication: PRODUCT USED FOR UNKNOWN INDICATION
     Dosage: 20 MG, UNK
     Route: 048
  6. PACLITAXEL. [Concomitant]
     Active Substance: PACLITAXEL
     Indication: OROPHARYNGEAL CANCER
     Dosage: UNK
     Dates: start: 20191031
  7. AMLODIPINE BESILATE [Concomitant]
     Active Substance: AMLODIPINE BESYLATE
     Indication: PRODUCT USED FOR UNKNOWN INDICATION
     Dosage: 5 MG, DAILY
     Route: 048
  8. MIYA-BM [Concomitant]
     Active Substance: CLOSTRIDIUM BUTYRICUM SPORES STRAIN M-55
     Indication: PRODUCT USED FOR UNKNOWN INDICATION
     Dosage: UNK
  9. KALIMATE [Concomitant]
     Active Substance: CALCIUM POLYSTYRENE SULFONATE
     Indication: PRODUCT USED FOR UNKNOWN INDICATION
     Dosage: ORAL SOLUTION 20 PERCENT (25 G/PACK)
     Route: 048
  10. MAGNESIUM OXIDE. [Concomitant]
     Active Substance: MAGNESIUM OXIDE
     Indication: PRODUCT USED FOR UNKNOWN INDICATION
     Dosage: 250 MG, UNK
     Route: 048

REACTIONS (3)
  - Off label use [Unknown]
  - Hypomagnesaemia [Recovering/Resolving]
  - Hyperkalaemia [Recovering/Resolving]

NARRATIVE: CASE EVENT DATE: 20191128
